FAERS Safety Report 6691592-0 (Version None)
Quarter: 2010Q2

REPORT INFORMATION
  Report Type: 
  Country: None (occurrence: None)
  Receive Date: 20100422
  Receipt Date: 20100413
  Transmission Date: 20101027
  Serious: Yes (Hospitalization, Other)
  Sender: FDA-Public Use
  Company Number: US-ASTRAZENECA-2010SE16423

PATIENT
  Age: 55 Year
  Sex: Male
  Weight: 86.2 kg

DRUGS (4)
  1. ATACAND [Suspect]
     Indication: HYPERTENSION
     Route: 048
  2. NEXIUM [Suspect]
     Indication: GASTROOESOPHAGEAL REFLUX DISEASE
     Route: 048
  3. CRESTOR [Suspect]
     Indication: BLOOD CHOLESTEROL INCREASED
     Route: 048
     Dates: end: 20100330
  4. CRESTOR [Suspect]
     Route: 048
     Dates: start: 20100331

REACTIONS (6)
  - BACK PAIN [None]
  - DEVICE OCCLUSION [None]
  - MYOCARDIAL INFARCTION [None]
  - PROSTATIC SPECIFIC ANTIGEN INCREASED [None]
  - STENT PLACEMENT [None]
  - STENT REMOVAL [None]
